FAERS Safety Report 6415845-6 (Version None)
Quarter: 2009Q4

REPORT INFORMATION
  Report Type: 
  Country: None (occurrence: None)
  Receive Date: 20091023
  Receipt Date: 20091019
  Transmission Date: 20100525
  Serious: Yes (Life-Threatening, Hospitalization)
  Sender: FDA-Public Use
  Company Number: AUR-APU-2009-01015

PATIENT
  Age: 17 Year
  Sex: Female

DRUGS (1)
  1. LEVETIRACETAM [Suspect]
     Indication: CONVULSION
     Dosage: 250MG - BID - ORAL
     Route: 048

REACTIONS (11)
  - ABDOMINAL PAIN [None]
  - DIARRHOEA [None]
  - EOSINOPHILIA [None]
  - FATIGUE [None]
  - HYDRONEPHROSIS [None]
  - PALLOR [None]
  - RENAL FAILURE ACUTE [None]
  - RENAL PAPILLARY NECROSIS [None]
  - SCAR [None]
  - TUBULOINTERSTITIAL NEPHRITIS [None]
  - URETERIC OBSTRUCTION [None]
